FAERS Safety Report 20648366 (Version 11)
Quarter: 2022Q2

REPORT INFORMATION
  Report Type: Report from Study
  Country: US (occurrence: US)
  Receive Date: 20220329
  Receipt Date: 20220621
  Transmission Date: 20220721
  Serious: Yes (Hospitalization, Other)
  Sender: FDA-Public Use
  Company Number: US-GILEAD-2022-0575318

PATIENT
  Age: 2 Year
  Sex: Female

DRUGS (6)
  1. AMBRISENTAN [Suspect]
     Active Substance: AMBRISENTAN
     Indication: Pulmonary arterial hypertension
     Dosage: 5 MG
     Route: 048
     Dates: start: 20210427
  2. AMBRISENTAN [Suspect]
     Active Substance: AMBRISENTAN
     Dosage: 5 MG, QD
     Route: 048
     Dates: start: 20220318
  3. REMODULIN [Suspect]
     Active Substance: TREPROSTINIL
     Indication: Product used for unknown indication
     Dosage: 47.6 NG/KG/MIN
     Route: 065
  4. REMODULIN [Suspect]
     Active Substance: TREPROSTINIL
     Dosage: 50.4 NG/KG/MIN
     Route: 058
  5. TADALAFIL [Concomitant]
     Active Substance: TADALAFIL
  6. UPTRAVI [Concomitant]
     Active Substance: SELEXIPAG

REACTIONS (25)
  - Loss of consciousness [Unknown]
  - Unresponsive to stimuli [Unknown]
  - Adenotonsillectomy [Unknown]
  - Infusion site haemorrhage [Not Recovered/Not Resolved]
  - COVID-19 [Unknown]
  - Infusion site erythema [Not Recovered/Not Resolved]
  - Infusion site inflammation [Not Recovered/Not Resolved]
  - Infusion site discharge [Not Recovered/Not Resolved]
  - Infusion site swelling [Not Recovered/Not Resolved]
  - Somnolence [Unknown]
  - Vomiting [Recovering/Resolving]
  - Feeding tube user [Not Recovered/Not Resolved]
  - Flushing [Not Recovered/Not Resolved]
  - Fatigue [Unknown]
  - Lethargy [Unknown]
  - Skin discolouration [Unknown]
  - Infusion site erythema [Unknown]
  - Infusion site swelling [Not Recovered/Not Resolved]
  - Infusion site pain [Not Recovered/Not Resolved]
  - Patient-device incompatibility [Not Recovered/Not Resolved]
  - Device occlusion [Unknown]
  - Irritability [Not Recovered/Not Resolved]
  - Infusion site erythema [Unknown]
  - Infusion site swelling [Unknown]
  - Off label use [Not Recovered/Not Resolved]

NARRATIVE: CASE EVENT DATE: 20210427
